FAERS Safety Report 13612603 (Version 3)
Quarter: 2017Q2

REPORT INFORMATION
  Report Type: Spontaneous
  Country: US (occurrence: US)
  Receive Date: 20170605
  Receipt Date: 20170615
  Transmission Date: 20170830
  Serious: Yes (Hospitalization, Other)
  Sender: FDA-Public Use
  Company Number: US-BAXALTA-2017BLT005262

PATIENT
  Age: 58 Year
  Sex: Female
  Weight: 68.9 kg

DRUGS (2)
  1. GAMMAGARD LIQUID [Suspect]
     Active Substance: HUMAN IMMUNOGLOBULIN G
     Indication: IMMUNODEFICIENCY COMMON VARIABLE
     Dosage: 25 G, 1X A MONTH
     Route: 042
     Dates: start: 2012
  2. GAMMAGARD LIQUID [Suspect]
     Active Substance: HUMAN IMMUNOGLOBULIN G
     Dosage: 25 G, 1X A MONTH
     Route: 042
     Dates: start: 20170510

REACTIONS (7)
  - Transfusion-related acute lung injury [Recovered/Resolved]
  - Anxiety [Unknown]
  - Chronic kidney disease [Unknown]
  - Hypomagnesaemia [Not Recovered/Not Resolved]
  - Asthma [Unknown]
  - Type 2 diabetes mellitus [Unknown]
  - Fatigue [Recovered/Resolved]

NARRATIVE: CASE EVENT DATE: 20170510
